FAERS Safety Report 9473890 (Version 2)
Quarter: 2013Q4

REPORT INFORMATION
  Report Type: Spontaneous
  Country: GB (occurrence: GB)
  Receive Date: 20130823
  Receipt Date: 20131119
  Transmission Date: 20140711
  Serious: Yes (Hospitalization)
  Sender: FDA-Public Use
  Company Number: PHHY2013GB089828

PATIENT
  Age: 89 Year
  Sex: Female

DRUGS (12)
  1. CLOPIDOGREL [Suspect]
     Dosage: 75 MG, QD
     Route: 048
  2. ACETYLSALICYLIC ACID [Suspect]
     Dosage: 75 MG, QD
     Route: 048
  3. OMEPRAZOLE [Concomitant]
     Dosage: 40 MG, QD
  4. DIGOXIN [Concomitant]
     Dosage: 62.5 UG, QD
  5. LEVOTHYROXINE [Concomitant]
     Dosage: 50 UG, QD
  6. SODIUM BICARBONATE [Concomitant]
     Dosage: 500 MG, TID
  7. QUETIAPINE [Concomitant]
     Dosage: 50 MG, QD (ONE AT NIGHT)
  8. ZOPICLONE [Concomitant]
     Dosage: 7.5 MG, QD (ONE AT NIGHT).
  9. FLUDROCORTISONE [Concomitant]
     Dosage: 100 UG, QD
  10. SALBUTAMOL [Concomitant]
  11. PARACETAMOL [Concomitant]
  12. CLENIL MODULITE [Concomitant]

REACTIONS (2)
  - Anaemia [Recovered/Resolved]
  - Dyspnoea [Recovered/Resolved]
